FAERS Safety Report 9198413 (Version 1)
Quarter: 2013Q1

REPORT INFORMATION
  Report Type: Spontaneous
  Country: TN (occurrence: None)
  Receive Date: 20130326
  Receipt Date: 20130326
  Transmission Date: 20140127
  Serious: Yes (Death)
  Sender: FDA-Public Use
  Company Number: B0876887A

PATIENT
  Age: 43 Year
  Sex: Male

DRUGS (1)
  1. SALBUTAMOL SULPHATE [Suspect]
     Indication: ASTHMA

REACTIONS (4)
  - Completed suicide [None]
  - Cyanosis [None]
  - Oesophageal obstruction [None]
  - Obstructive airways disorder [None]
